FAERS Safety Report 13837831 (Version 5)
Quarter: 2017Q3

REPORT INFORMATION
  Report Type: Spontaneous
  Country: US (occurrence: US)
  Receive Date: 20170806
  Receipt Date: 20170921
  Transmission Date: 20171127
  Serious: No
  Sender: FDA-Public Use
  Company Number: PHEH2017US024271

PATIENT
  Sex: Female

DRUGS (1)
  1. CIPRODEX [Suspect]
     Active Substance: CIPROFLOXACIN HYDROCHLORIDE\DEXAMETHASONE
     Indication: EAR INFECTION
     Dosage: 4 GTT, BID
     Route: 001
     Dates: start: 20170730

REACTIONS (5)
  - Excessive cerumen production [Not Recovered/Not Resolved]
  - Ear swelling [Not Recovered/Not Resolved]
  - Drug ineffective [Unknown]
  - Otorrhoea [Not Recovered/Not Resolved]
  - Ear pain [Unknown]
